FAERS Safety Report 5566346-9 (Version None)
Quarter: 2007Q4

REPORT INFORMATION
  Report Type: 
  Country: None (occurrence: None)
  Receive Date: 20071219
  Receipt Date: 20071210
  Transmission Date: 20080405
  Serious: Yes (Death)
  Sender: FDA-Public Use
  Company Number: FR-JNJFOC-20071203464

PATIENT
  Age: 2 Hour
  Sex: Male

DRUGS (7)
  1. ACETAMINOPHEN [Suspect]
     Route: 015
  2. ACETAMINOPHEN [Suspect]
     Indication: DRUG EXPOSURE DURING PREGNANCY
     Route: 015
  3. NALBUPHIN [Suspect]
     Indication: DRUG EXPOSURE DURING PREGNANCY
     Route: 015
  4. ROPIVACAIN [Suspect]
     Indication: DRUG EXPOSURE DURING PREGNANCY
     Route: 015
  5. SUFENTANIL CITRATE [Suspect]
     Indication: DRUG EXPOSURE DURING PREGNANCY
     Route: 015
  6. ERYTHROMYCIN [Concomitant]
     Indication: DRUG EXPOSURE DURING PREGNANCY
  7. HYDROXYZIN [Concomitant]
     Indication: DRUG EXPOSURE DURING PREGNANCY
     Route: 015

REACTIONS (1)
  - CARDIO-RESPIRATORY ARREST NEONATAL [None]
